FAERS Safety Report 9109378 (Version 1)
Quarter: 2013Q1

REPORT INFORMATION
  Report Type: Spontaneous
  Country: FR (occurrence: FR)
  Receive Date: 20130222
  Receipt Date: 20130222
  Transmission Date: 20140127
  Serious: Yes (Hospitalization)
  Sender: FDA-Public Use
  Company Number: PHHY2013FR017296

PATIENT
  Age: 88 Year
  Sex: Female

DRUGS (4)
  1. EXELON PATCH [Suspect]
     Dosage: 9.5 MG, QD
     Route: 062
     Dates: start: 201207, end: 20130114
  2. KARDEGIC [Concomitant]
     Dosage: UNK
  3. OMEPRAZOLE [Concomitant]
     Dosage: UNK
  4. RAMIPRIL [Concomitant]
     Dosage: UNK

REACTIONS (2)
  - Convulsion [Recovered/Resolved]
  - Agitation [Recovered/Resolved]
